FAERS Safety Report 24986572 (Version 3)
Quarter: 2025Q1

REPORT INFORMATION
  Report Type: Spontaneous
  Country: FR (occurrence: FR)
  Receive Date: 20250219
  Receipt Date: 20250317
  Transmission Date: 20250409
  Serious: Yes (Hospitalization, Other)
  Sender: MYLAN
  Company Number: None

PATIENT
  Age: 21 Year
  Sex: Male

DRUGS (28)
  1. LYRICA [Suspect]
     Active Substance: PREGABALIN
     Indication: Product used for unknown indication
     Dosage: UNK, QW (3 TO 4X/WEEK, LAST DOSE: 4 CAPSULES OF 300MG)
  2. LYRICA [Suspect]
     Active Substance: PREGABALIN
     Dosage: UNK, QW (3 TO 4X/WEEK, LAST DOSE: 4 CAPSULES OF 300MG)
     Route: 048
  3. LYRICA [Suspect]
     Active Substance: PREGABALIN
     Dosage: UNK, QW (3 TO 4X/WEEK, LAST DOSE: 4 CAPSULES OF 300MG)
     Route: 048
  4. LYRICA [Suspect]
     Active Substance: PREGABALIN
     Dosage: UNK, QW (3 TO 4X/WEEK, LAST DOSE: 4 CAPSULES OF 300MG)
  5. CANNABIS SATIVA SUBSP. INDICA TOP [Suspect]
     Active Substance: CANNABIS SATIVA SUBSP. INDICA TOP
     Indication: Product used for unknown indication
     Dosage: UNK, QD, ABOUT 7 JOINTS/DAY
  6. CANNABIS SATIVA SUBSP. INDICA TOP [Suspect]
     Active Substance: CANNABIS SATIVA SUBSP. INDICA TOP
     Dosage: UNK, QD, ABOUT 7 JOINTS/DAY
     Route: 055
  7. CANNABIS SATIVA SUBSP. INDICA TOP [Suspect]
     Active Substance: CANNABIS SATIVA SUBSP. INDICA TOP
     Dosage: UNK, QD, ABOUT 7 JOINTS/DAY
     Route: 055
  8. CANNABIS SATIVA SUBSP. INDICA TOP [Suspect]
     Active Substance: CANNABIS SATIVA SUBSP. INDICA TOP
     Dosage: UNK, QD, ABOUT 7 JOINTS/DAY
  9. COCAINE [Suspect]
     Active Substance: COCAINE
     Indication: Product used for unknown indication
     Route: 045
  10. COCAINE [Suspect]
     Active Substance: COCAINE
  11. COCAINE [Suspect]
     Active Substance: COCAINE
  12. COCAINE [Suspect]
     Active Substance: COCAINE
     Route: 045
  13. COCAINE [Suspect]
     Active Substance: COCAINE
     Route: 065
  14. COCAINE [Suspect]
     Active Substance: COCAINE
  15. COCAINE [Suspect]
     Active Substance: COCAINE
  16. COCAINE [Suspect]
     Active Substance: COCAINE
     Route: 065
  17. HEROIN [Suspect]
     Active Substance: DIAMORPHINE
     Indication: Product used for unknown indication
  18. HEROIN [Suspect]
     Active Substance: DIAMORPHINE
     Route: 065
  19. HEROIN [Suspect]
     Active Substance: DIAMORPHINE
     Route: 065
  20. HEROIN [Suspect]
     Active Substance: DIAMORPHINE
  21. NITROUS OXIDE [Suspect]
     Active Substance: NITROUS OXIDE
     Indication: Product used for unknown indication
  22. NITROUS OXIDE [Suspect]
     Active Substance: NITROUS OXIDE
     Route: 065
  23. NITROUS OXIDE [Suspect]
     Active Substance: NITROUS OXIDE
     Route: 065
  24. NITROUS OXIDE [Suspect]
     Active Substance: NITROUS OXIDE
  25. MIDOMAFETAMINE [Suspect]
     Active Substance: MIDOMAFETAMINE
     Indication: Product used for unknown indication
     Dosage: UNK UNK, QD, 3 TO 4 TABLETS IN THE EVENING
  26. MIDOMAFETAMINE [Suspect]
     Active Substance: MIDOMAFETAMINE
     Dosage: UNK UNK, QD, 3 TO 4 TABLETS IN THE EVENING
     Route: 048
  27. MIDOMAFETAMINE [Suspect]
     Active Substance: MIDOMAFETAMINE
     Dosage: UNK UNK, QD, 3 TO 4 TABLETS IN THE EVENING
     Route: 048
  28. MIDOMAFETAMINE [Suspect]
     Active Substance: MIDOMAFETAMINE
     Dosage: UNK UNK, QD, 3 TO 4 TABLETS IN THE EVENING

REACTIONS (6)
  - Toxicity to various agents [Recovering/Resolving]
  - Somnolence [Recovered/Resolved]
  - Drug dependence [Recovering/Resolving]
  - Drug abuse [Recovered/Resolved]
  - Euphoric mood [Recovering/Resolving]
  - Intentional product misuse [Recovering/Resolving]
